FAERS Safety Report 19786069 (Version 1)
Quarter: 2021Q3

REPORT INFORMATION
  Report Type: Spontaneous
  Country: US (occurrence: US)
  Receive Date: 20210903
  Receipt Date: 20210903
  Transmission Date: 20211014
  Serious: No
  Sender: FDA-Public Use
  Company Number: US-UNITED THERAPEUTICS-UNT-2021-015246

PATIENT
  Age: 49 Year
  Sex: Male
  Weight: 108.84 kg

DRUGS (8)
  1. REMODULIN [Suspect]
     Active Substance: TREPROSTINIL
     Dosage: 0.005 ?G/KG, CONTINUING
     Route: 058
     Dates: start: 202108
  2. REMODULIN [Suspect]
     Active Substance: TREPROSTINIL
     Dosage: UNK, CONTINUING (INCREASED DOSE EARLIER IN THE DAY)
     Route: 058
     Dates: start: 20210816
  3. REMODULIN [Suspect]
     Active Substance: TREPROSTINIL
     Dosage: 0.011 ?G/KG, CONTINUING
     Route: 058
     Dates: start: 202108
  4. REMODULIN [Suspect]
     Active Substance: TREPROSTINIL
     Dosage: UNK UNK, CONTINUING (AT A RATE OF 0.008 MH/HR)
     Route: 058
     Dates: start: 2021
  5. REMODULIN [Suspect]
     Active Substance: TREPROSTINIL
     Dosage: UNK UNK, CONTINUING (AT A RATE OF 0.01 MH/HR)
     Route: 058
     Dates: start: 2021
  6. REMODULIN [Suspect]
     Active Substance: TREPROSTINIL
     Dosage: 0.007 ?G/KG, CONTINUING (INCREASED RATE)
     Route: 058
     Dates: start: 20210817
  7. REMODULIN [Suspect]
     Active Substance: TREPROSTINIL
     Indication: PULMONARY ARTERIAL HYPERTENSION
     Dosage: UNK, CONTINUING
     Route: 058
     Dates: start: 20210803
  8. REMODULIN [Suspect]
     Active Substance: TREPROSTINIL
     Dosage: UNK, CONTINUING (INCREASED DOSE AT NIGHT)
     Route: 058
     Dates: start: 20210816

REACTIONS (9)
  - Infusion site pain [Recovering/Resolving]
  - Infusion site haemorrhage [Unknown]
  - Nausea [Unknown]
  - Temperature intolerance [Recovering/Resolving]
  - Headache [Unknown]
  - Paraesthesia [Unknown]
  - Migraine [Unknown]
  - Diarrhoea [Not Recovered/Not Resolved]
  - Hot flush [Unknown]

NARRATIVE: CASE EVENT DATE: 202108
